FAERS Safety Report 6251199-6 (Version None)
Quarter: 2009Q2

REPORT INFORMATION
  Report Type: 
  Country: None (occurrence: None)
  Receive Date: 20090626
  Receipt Date: 20090612
  Transmission Date: 20091009
  Serious: Yes (Hospitalization)
  Sender: FDA-Public Use
  Company Number: 2009001782

PATIENT
  Age: 63 Year
  Sex: Male
  Weight: 67.8 kg

DRUGS (10)
  1. ERLOTINIB [Suspect]
     Indication: NON-SMALL CELL LUNG CANCER
     Dosage: (150 MG,QD), ORAL
     Route: 048
     Dates: start: 20090319
  2. CP-751, 871 (INJECTION FOR INFUSION) [Suspect]
     Indication: NON-SMALL CELL LUNG CANCER
     Dosage: (720 MG), INTRAVENOUS
     Route: 042
     Dates: start: 20090501
  3. SIMVASTATIN (SIMVASTATIN) [Concomitant]
  4. METFORMIN HCL [Concomitant]
  5. ASPIRIN [Concomitant]
  6. CO-CODAMOL (PANADEINE CO) [Concomitant]
  7. LOPERAMIDE (LOPERAMIDE) [Concomitant]
  8. METOCLOPRAMIDE [Concomitant]
  9. AQUEOUS CREAM (AQUEOUS CREAM) [Concomitant]
  10. ORAMORPH SR [Concomitant]

REACTIONS (1)
  - HAEMOPTYSIS [None]
